FAERS Safety Report 15103102 (Version 1)
Quarter: 2018Q3

REPORT INFORMATION
  Report Type: Report from Study
  Country: AT (occurrence: AT)
  Receive Date: 20180703
  Receipt Date: 20180703
  Transmission Date: 20181010
  Serious: Yes (Hospitalization, Other)
  Sender: FDA-Public Use
  Company Number: AT-CELGENEUS-AUT-20180607836

PATIENT
  Age: 61 Year
  Sex: Male

DRUGS (10)
  1. POMALIDOMIDE [Suspect]
     Active Substance: POMALIDOMIDE
     Indication: PLASMA CELL MYELOMA
     Route: 048
     Dates: start: 20140425
  2. POMALIDOMIDE [Suspect]
     Active Substance: POMALIDOMIDE
     Route: 048
     Dates: start: 20140523, end: 20171113
  3. REVLIMID [Suspect]
     Active Substance: LENALIDOMIDE
     Indication: PLASMA CELL MYELOMA
     Route: 048
     Dates: start: 200801, end: 201404
  4. DEXAMETHASONE. [Suspect]
     Active Substance: DEXAMETHASONE
     Route: 065
     Dates: start: 20160523
  5. DEXAMETHASONE. [Suspect]
     Active Substance: DEXAMETHASONE
     Route: 065
     Dates: start: 20170607, end: 20171113
  6. MARCOUMAR [Concomitant]
     Active Substance: PHENPROCOUMON
     Indication: THROMBOSIS PROPHYLAXIS
     Route: 065
  7. DEXAMETHASONE. [Suspect]
     Active Substance: DEXAMETHASONE
     Route: 065
     Dates: start: 200801, end: 201404
  8. ELOTUZUMAB. [Suspect]
     Active Substance: ELOTUZUMAB
     Indication: PLASMA CELL MYELOMA
     Route: 065
     Dates: start: 20151006
  9. DEXAMETHASONE. [Suspect]
     Active Substance: DEXAMETHASONE
     Indication: PLASMA CELL MYELOMA
     Route: 065
     Dates: start: 200707, end: 200709
  10. DEXAMETHASONE. [Suspect]
     Active Substance: DEXAMETHASONE
     Route: 065
     Dates: start: 20151005

REACTIONS (21)
  - Gastroenteritis [Recovered/Resolved]
  - Back pain [Recovered/Resolved]
  - Pain in extremity [Recovered/Resolved]
  - Dyspnoea [Not Recovered/Not Resolved]
  - Basal cell carcinoma [Unknown]
  - Pain in extremity [Recovered/Resolved]
  - Arrhythmia [Recovered/Resolved]
  - Rib fracture [Recovered/Resolved]
  - Clumsiness [Not Recovered/Not Resolved]
  - Complication associated with device [Recovered/Resolved]
  - Pain in extremity [Recovered/Resolved]
  - Facial pain [Not Recovered/Not Resolved]
  - Tinnitus [Unknown]
  - Erythema [Recovered/Resolved]
  - Rash pruritic [Not Recovered/Not Resolved]
  - Muscle disorder [Recovered/Resolved]
  - Tooth extraction [Recovered/Resolved]
  - Arthropathy [Recovered/Resolved]
  - Rash [Not Recovered/Not Resolved]
  - Bronchitis [Recovered/Resolved]
  - Pain in extremity [Not Recovered/Not Resolved]

NARRATIVE: CASE EVENT DATE: 20140630
